FAERS Safety Report 24769296 (Version 1)
Quarter: 2024Q4

REPORT INFORMATION
  Report Type: Spontaneous
  Country: CN (occurrence: CN)
  Receive Date: 20241224
  Receipt Date: 20241224
  Transmission Date: 20250115
  Serious: Yes (Hospitalization, Other)
  Sender: JOHNSON AND JOHNSON
  Company Number: CN-JNJFOC-20241227761

PATIENT
  Age: 59 Year
  Sex: Male

DRUGS (1)
  1. AMIVANTAMAB [Suspect]
     Active Substance: AMIVANTAMAB
     Indication: Lung adenocarcinoma
     Dates: start: 20220810

REACTIONS (6)
  - Cellulitis [Recovering/Resolving]
  - Rash erythematous [Recovering/Resolving]
  - Dermatitis acneiform [Recovering/Resolving]
  - Paronychia [Recovering/Resolving]
  - Deep vein thrombosis [Recovering/Resolving]
  - Product use in unapproved indication [Unknown]
